FAERS Safety Report 5709259-1 (Version None)
Quarter: 2008Q2

REPORT INFORMATION
  Report Type: 
  Country: None (occurrence: None)
  Receive Date: 20080418
  Receipt Date: 20080321
  Transmission Date: 20081010
  Serious: No
  Sender: FDA-Public Use
  Company Number: US-BAYER-200818705NA

PATIENT
  Age: 32 Year
  Sex: Male

DRUGS (4)
  1. ULTRAVIST 300 [Suspect]
     Indication: SCAN BRAIN
     Dosage: TOTAL DAILY DOSE: 90 ML
     Route: 042
     Dates: start: 20080321, end: 20080321
  2. SINGULAIR [Concomitant]
  3. NEXIUM [Concomitant]
  4. LEVAQUIN [Concomitant]
     Indication: PHARYNGOLARYNGEAL PAIN

REACTIONS (1)
  - URTICARIA [None]
